FAERS Safety Report 10341631 (Version 1)
Quarter: 2014Q3

REPORT INFORMATION
  Report Type: Spontaneous
  Country: US (occurrence: None)
  Receive Date: 20140724
  Receipt Date: 20140724
  Transmission Date: 20150326
  Serious: No
  Sender: FDA-Public Use
  Company Number: None

PATIENT
  Age: 82 Year
  Sex: Female

DRUGS (2)
  1. PRESERVISION AREDS 2 VITAMINS [Suspect]
     Active Substance: MINERALS\VITAMINS
  2. PRESERVISION AREDS VITAMINS [Suspect]
     Active Substance: MINERALS\VITAMINS

REACTIONS (2)
  - Product name confusion [None]
  - Wrong drug administered [None]

NARRATIVE: CASE EVENT DATE: 2014
